FAERS Safety Report 24242968 (Version 1)
Quarter: 2024Q3

REPORT INFORMATION
  Report Type: Spontaneous
  Country: US (occurrence: US)
  Receive Date: 20240823
  Receipt Date: 20240823
  Transmission Date: 20241016
  Serious: No
  Sender: MYLAN
  Company Number: US-MYLANLABS-2024M1057897

PATIENT
  Age: 80 Year
  Sex: Female
  Weight: 55.79 kg

DRUGS (1)
  1. TYRVAYA [Suspect]
     Active Substance: VARENICLINE TARTRATE
     Indication: Product used for unknown indication
     Dosage: UNK
     Route: 045
     Dates: start: 20240620

REACTIONS (6)
  - Rhinorrhoea [Unknown]
  - Fatigue [Unknown]
  - Dizziness [Unknown]
  - Sneezing [Unknown]
  - Productive cough [Not Recovered/Not Resolved]
  - Throat irritation [Recovered/Resolved]

NARRATIVE: CASE EVENT DATE: 20240620
